FAERS Safety Report 6658682-X (Version None)
Quarter: 2010Q1

REPORT INFORMATION
  Report Type: 
  Country: None (occurrence: None)
  Receive Date: 20100330
  Receipt Date: 20100317
  Transmission Date: 20100710
  Serious: Yes (Hospitalization)
  Sender: FDA-Public Use
  Company Number: PHHY2010GB17224

PATIENT
  Age: 56 Year
  Sex: Female

DRUGS (7)
  1. NEORAL [Suspect]
     Indication: TRANSPLANT ABSCESS
  2. STEROIDS NOS [Concomitant]
  3. LEVOTHYROXINE SODIUM [Concomitant]
  4. IRBESARTAN [Concomitant]
  5. ASPIRIN [Concomitant]
  6. PENICILLIN V [Concomitant]
     Dosage: UNK
  7. LACTULOSE [Concomitant]

REACTIONS (9)
  - AMMONIA INCREASED [None]
  - BACK PAIN [None]
  - BALANCE DISORDER [None]
  - HEADACHE [None]
  - INFECTION [None]
  - MEMORY IMPAIRMENT [None]
  - NECK PAIN [None]
  - NERVOUS SYSTEM DISORDER [None]
  - SIGHT DISABILITY [None]
